FAERS Safety Report 17032516 (Version 1)
Quarter: 2019Q4

REPORT INFORMATION
  Report Type: Report from Study
  Country: IT (occurrence: IT)
  Receive Date: 20191114
  Receipt Date: 20191114
  Transmission Date: 20200122
  Serious: Yes (Other)
  Sender: FDA-Public Use
  Company Number: PHHY2018IT069916

PATIENT
  Age: 51 Year
  Sex: Female

DRUGS (2)
  1. SIGNIFOR [Suspect]
     Active Substance: PASIREOTIDE
     Indication: PITUITARY-DEPENDENT CUSHING^S SYNDROME
     Dosage: UNK
     Route: 058
     Dates: start: 20140307, end: 20160627
  2. SIGNIFOR [Suspect]
     Active Substance: PASIREOTIDE
     Dosage: UNK
     Route: 058
     Dates: start: 20160628

REACTIONS (2)
  - Hyperadrenocorticism [Unknown]
  - Hypercholesterolaemia [Recovered/Resolved]

NARRATIVE: CASE EVENT DATE: 20180510
